FAERS Safety Report 4890338-6 (Version None)
Quarter: 2005Q4

REPORT INFORMATION
  Report Type: 
  Country: None (occurrence: None)
  Receive Date: 20051220
  Receipt Date: 20051028
  Transmission Date: 20060501
  Serious: Yes (Other)
  Sender: FDA-Public Use
  Company Number: 405097

PATIENT
  Age: 53 Year
  Sex: Female
  Weight: 49.4 kg

DRUGS (1)
  1. BONIVA [Suspect]
     Dosage: ORAL
     Route: 048
     Dates: start: 20050508

REACTIONS (1)
  - BACK PAIN [None]
